FAERS Safety Report 7342725-4 (Version None)
Quarter: 2011Q1

REPORT INFORMATION
  Report Type: 
  Country: None (occurrence: None)
  Receive Date: 20110310
  Receipt Date: 20110214
  Transmission Date: 20110831
  Serious: Yes (Hospitalization, Other)
  Sender: FDA-Public Use
  Company Number: ES-CELGENEUS-144-C5013-10112162

PATIENT
  Sex: Male
  Weight: 66.7 kg

DRUGS (17)
  1. TELMISARTAN [Concomitant]
     Indication: HYPERTENSION
     Dosage: 40 MILLIGRAM
     Route: 048
     Dates: start: 20100317
  2. EPREX [Concomitant]
     Dosage: 5714.2857 IU (INTERNATIONAL UNIT)
     Route: 058
     Dates: start: 20101020, end: 20101117
  3. NOVOMIX 50 [Concomitant]
     Indication: DIABETES MELLITUS
     Dosage: 10 IU (INTERNATIONAL UNIT)
     Route: 030
     Dates: start: 20100701
  4. DEXAMETHASONE [Suspect]
     Dosage: 20 MILLIGRAM
     Route: 065
     Dates: start: 20101021, end: 20110106
  5. ASPIRIN [Concomitant]
     Indication: THROMBOSIS PROPHYLAXIS
     Dosage: 100 MILLIGRAM
     Route: 048
     Dates: start: 20100820, end: 20110110
  6. ENALAPRIL MALEATE [Concomitant]
     Indication: HYPERTENSION
     Dosage: 5 MILLIGRAM
     Route: 048
     Dates: start: 20100222, end: 20101215
  7. CC-5013 [Suspect]
     Indication: MULTIPLE MYELOMA
     Dosage: 25 MILLIGRAM
     Route: 048
     Dates: start: 20100309
  8. DEXAMETHASONE [Suspect]
     Indication: MULTIPLE MYELOMA
     Dosage: 20 MILLIGRAM
     Route: 065
     Dates: start: 20100309
  9. NOVOMIX30 [Concomitant]
     Indication: DIABETES MELLITUS
     Dosage: 10 IU (INTERNATIONAL UNIT)
     Route: 030
     Dates: start: 20100701
  10. ASPIRIN [Concomitant]
     Dosage: 100 MILLIGRAM
     Route: 048
     Dates: start: 20110119
  11. SIMVASTATIN [Concomitant]
     Dosage: 20 MILLIGRAM
     Route: 048
     Dates: start: 20100228, end: 20101215
  12. NOVORAPID [Concomitant]
     Indication: DIABETES MELLITUS
     Route: 030
     Dates: start: 20100711
  13. METAMIZOLE [Concomitant]
     Route: 048
     Dates: start: 20100527
  14. DURAGESIC-100 [Concomitant]
     Dosage: 16.6667 MILLIGRAM
     Route: 062
     Dates: start: 20100527
  15. CC-5013 [Suspect]
     Dosage: 20 MILLIGRAM
     Route: 048
     Dates: start: 20101021, end: 20110105
  16. OMEPRAZOLE [Concomitant]
     Indication: PROPHYLAXIS
     Dosage: 20 MILLIGRAM
     Route: 048
     Dates: start: 20100309
  17. LACTULOSA [Concomitant]
     Indication: CONSTIPATION PROPHYLAXIS
     Route: 048
     Dates: start: 20100317

REACTIONS (1)
  - TRANSITIONAL CELL CARCINOMA [None]
